FAERS Safety Report 26086787 (Version 2)
Quarter: 2025Q4

REPORT INFORMATION
  Report Type: Spontaneous
  Country: US (occurrence: US)
  Receive Date: 20251125
  Receipt Date: 20251226
  Transmission Date: 20260118
  Serious: Yes (Hospitalization, Other)
  Sender: BAYER HEALTHCARE PHARMACEUTICALS INC.
  Company Number: US-BAYER-2025A152951

PATIENT
  Age: 43 Year
  Sex: Female
  Weight: 195 kg

DRUGS (2)
  1. GADAVIST [Suspect]
     Active Substance: GADOBUTROL
     Indication: Magnetic resonance imaging joint
     Dosage: 8 ML, ONCE
     Route: 042
     Dates: start: 20251105, end: 20251105
  2. GADAVIST [Suspect]
     Active Substance: GADOBUTROL
     Indication: Nodule

REACTIONS (5)
  - Dyspnoea [Unknown]
  - Cough [None]
  - Erythema [Unknown]
  - Pharyngeal swelling [Unknown]
  - Pruritus [Unknown]

NARRATIVE: CASE EVENT DATE: 20251105
